FAERS Safety Report 7735688-0 (Version None)
Quarter: 2011Q3

REPORT INFORMATION
  Report Type: 
  Country: None (occurrence: None)
  Receive Date: 20110907
  Receipt Date: 20110824
  Transmission Date: 20111222
  Serious: Yes (Other)
  Sender: FDA-Public Use
  Company Number: GB-MYLANLABS-2011S1018066

PATIENT
  Sex: Female

DRUGS (1)
  1. TAMOXIFEN CITRATE [Suspect]
     Indication: BREAST CANCER
     Dates: start: 20080701

REACTIONS (9)
  - CONFUSIONAL STATE [None]
  - DYSPNOEA [None]
  - EMOTIONAL DISORDER [None]
  - NASOPHARYNGITIS [None]
  - OVARIAN CYST [None]
  - FATIGUE [None]
  - AMENORRHOEA [None]
  - ARTHRALGIA [None]
  - CRYING [None]
